FAERS Safety Report 20346547 (Version 1)
Quarter: 2022Q1

REPORT INFORMATION
  Report Type: Spontaneous
  Country: US (occurrence: None)
  Receive Date: 20220115
  Receipt Date: 20220115
  Transmission Date: 20220424
  Serious: Yes (Other)
  Sender: FDA-Public Use
  Company Number: None

PATIENT
  Age: 64 Year
  Sex: Female
  Weight: 51.3 kg

DRUGS (8)
  1. TOPIRAMATE [Suspect]
     Active Substance: TOPIRAMATE
     Indication: Migraine prophylaxis
     Dosage: FREQUENCY : TWICE A DAY;?
     Route: 048
     Dates: start: 20210826, end: 20210827
  2. Rizatripton [Concomitant]
  3. POTASSIUM [Concomitant]
     Active Substance: POTASSIUM
  4. FLONASE [Concomitant]
     Active Substance: FLUTICASONE PROPIONATE
  5. OSPHENA [Concomitant]
     Active Substance: OSPEMIFENE
  6. VITAMIN D [Concomitant]
     Active Substance: VITAMIN D NOS
  7. fossmax [Concomitant]
  8. TYLENOL [Concomitant]
     Active Substance: ACETAMINOPHEN

REACTIONS (3)
  - Blindness [None]
  - Macular degeneration [None]
  - Treatment failure [None]

NARRATIVE: CASE EVENT DATE: 20210826
